FAERS Safety Report 7805176-1 (Version None)
Quarter: 2011Q4

REPORT INFORMATION
  Report Type: 
  Country: None (occurrence: None)
  Receive Date: 20111010
  Receipt Date: 20110930
  Transmission Date: 20120403
  Serious: Yes (Other)
  Sender: FDA-Public Use
  Company Number: PHHY2011ES87201

PATIENT
  Age: 39 Year
  Sex: Female

DRUGS (1)
  1. CETIRIZINE HCL [Suspect]
     Indication: CONJUNCTIVITIS
     Dosage: 10 MG, QD

REACTIONS (7)
  - ARTHRALGIA [None]
  - JAUNDICE [None]
  - CHROMATURIA [None]
  - RASH [None]
  - URTICARIA [None]
  - LIVER DISORDER [None]
  - HEPATOTOXICITY [None]
